FAERS Safety Report 5716198-9 (Version None)
Quarter: 2008Q2

REPORT INFORMATION
  Report Type: 
  Country: None (occurrence: None)
  Receive Date: 20080424
  Receipt Date: 20080418
  Transmission Date: 20081010
  Serious: Yes (Hospitalization)
  Sender: FDA-Public Use
  Company Number: US-JNJFOC-20071107813

PATIENT
  Sex: Male

DRUGS (2)
  1. MOTRIN IB [Suspect]
  2. MOTRIN IB [Suspect]
     Indication: NECK PAIN

REACTIONS (3)
  - DUODENITIS [None]
  - GASTRIC ULCER [None]
  - UPPER GASTROINTESTINAL HAEMORRHAGE [None]
